FAERS Safety Report 9315399 (Version 1)
Quarter: 2013Q2

REPORT INFORMATION
  Report Type: Report from Study
  Country: AR (occurrence: AR)
  Receive Date: 20130529
  Receipt Date: 20130529
  Transmission Date: 20140414
  Serious: Yes (Other)
  Sender: FDA-Public Use
  Company Number: AR-ROCHE-1229088

PATIENT
  Sex: Female

DRUGS (1)
  1. LUCENTIS [Suspect]
     Indication: MACULOPATHY
     Dosage: 1 AMPOULE MONTHLY, LAST DOSE PRIOR TO EVENT: JUL/2011
     Route: 050
     Dates: start: 2011

REACTIONS (6)
  - Memory impairment [Not Recovered/Not Resolved]
  - Blindness unilateral [Not Recovered/Not Resolved]
  - Visual acuity reduced [Not Recovered/Not Resolved]
  - Local swelling [Recovered/Resolved]
  - Fall [Unknown]
  - Drug ineffective [Unknown]
